FAERS Safety Report 7687088-X (Version None)
Quarter: 2011Q3

REPORT INFORMATION
  Report Type: 
  Country: None (occurrence: None)
  Receive Date: 20110816
  Receipt Date: 20110811
  Transmission Date: 20111222
  Serious: Yes (Hospitalization, Other)
  Sender: FDA-Public Use
  Company Number: US-AMGEN-USASP2011037702

PATIENT
  Age: 66 Year
  Sex: Female
  Weight: 68 kg

DRUGS (12)
  1. SYNTHROID [Concomitant]
     Indication: HYPOTHYROIDISM
     Dosage: 125 MG, UNK
  2. LIPITOR [Concomitant]
     Indication: HYPERLIPIDAEMIA
     Dosage: 10 MG, UNK
  3. HYDROCHLOROTHIAZIDE [Concomitant]
     Indication: HYPERTENSION
     Dosage: 25 MG, UNK
  4. VITAMIN B12                        /00056201/ [Concomitant]
  5. FERROUS SULFATE TAB [Concomitant]
  6. TOPROL-XL [Concomitant]
  7. MECLIZINE                          /00072801/ [Concomitant]
     Indication: VERTIGO
  8. RIGELON [Concomitant]
  9. NPLATE [Suspect]
     Indication: IDIOPATHIC THROMBOCYTOPENIC PURPURA
     Dosage: 750 A?G, QWK
     Route: 058
     Dates: start: 20110101
  10. MULTIVITAMIN                       /00097801/ [Concomitant]
  11. COZAAR [Concomitant]
  12. VITAMIN D [Concomitant]

REACTIONS (9)
  - CHEST PAIN [None]
  - THROMBOCYTOPENIA [None]
  - ARTHRALGIA [None]
  - DIZZINESS [None]
  - PERICARDIAL EFFUSION [None]
  - SCIATICA [None]
  - CARDIOMEGALY [None]
  - OEDEMA PERIPHERAL [None]
  - INSOMNIA [None]
